FAERS Safety Report 8301834-3 (Version None)
Quarter: 2012Q2

REPORT INFORMATION
  Report Type: 
  Country: None (occurrence: None)
  Receive Date: 20120420
  Receipt Date: 20120418
  Transmission Date: 20120825
  Serious: Yes (Life-Threatening)
  Sender: FDA-Public Use
  Company Number: DE-B.I. PHARMACEUTICALS,INC./RIDGEFIELD-2012-DE-00965DE

PATIENT
  Sex: Male
  Weight: 110 kg

DRUGS (15)
  1. CITALOPRAM 20 [Concomitant]
  2. REO PRO 12,7 ML [Concomitant]
     Route: 016
  3. PRADAXA [Suspect]
     Indication: CEREBROVASCULAR ACCIDENT
     Dosage: 300 MG
  4. PANTOZOL 40 [Concomitant]
  5. PANTOPRAZOLE [Concomitant]
  6. AMLODIPIN 10 [Concomitant]
  7. FENOBETA 250 [Concomitant]
  8. SCANDICAIN 2% 10 ML S.C. [Concomitant]
  9. LASIX [Concomitant]
     Route: 042
  10. MORPHIN INJEKTIONSLOSUNG 5MG [Concomitant]
     Route: 042
  11. CORDAREX 150MG [Concomitant]
     Route: 042
  12. SUPRARENIN 1 AMP [Concomitant]
     Route: 042
  13. ACTILYSE 20MG [Concomitant]
     Route: 016
  14. ARTERENOL 7 ML/H [Concomitant]
     Route: 042
  15. ATROPINSULFAT 1MG [Concomitant]
     Route: 042

REACTIONS (2)
  - CARDIOGENIC SHOCK [None]
  - ACUTE MYOCARDIAL INFARCTION [None]
